FAERS Safety Report 6094838-5 (Version None)
Quarter: 2009Q1

REPORT INFORMATION
  Report Type: 
  Country: None (occurrence: None)
  Receive Date: 20090225
  Receipt Date: 20090213
  Transmission Date: 20090719
  Serious: No
  Sender: FDA-Public Use
  Company Number: US025486

PATIENT
  Age: 58 Year
  Sex: Male
  Weight: 136.0791 kg

DRUGS (3)
  1. FENTORA [Suspect]
     Indication: COMPLEX REGIONAL PAIN SYNDROME
     Dosage: 1600 MCG (400 MCG, 4 IN 1 D) QD BUCCAL
     Route: 002
     Dates: start: 20070101
  2. LYRICA [Concomitant]
  3. OXYCODONE HCL [Concomitant]

REACTIONS (2)
  - DRUG INEFFECTIVE [None]
  - INCORRECT ROUTE OF DRUG ADMINISTRATION [None]
